FAERS Safety Report 9307786 (Version 3)
Quarter: 2013Q3

REPORT INFORMATION
  Report Type: Spontaneous
  Country: US (occurrence: US)
  Receive Date: 20130524
  Receipt Date: 20130909
  Transmission Date: 20140515
  Serious: Yes (Life-Threatening, Congenital Anomaly, Other)
  Sender: FDA-Public Use
  Company Number: US-PFIZER INC-2013156862

PATIENT
  Sex: Female

DRUGS (7)
  1. ZOLOFT [Suspect]
     Dosage: UNK
     Route: 064
     Dates: start: 200009
  2. ZOLOFT [Suspect]
     Dosage: UNK
     Route: 064
     Dates: start: 20050216
  3. CLOMID [Concomitant]
     Dosage: UNK
     Route: 064
  4. CODEINE [Concomitant]
     Dosage: UNK
     Route: 064
  5. MEDROXYPROGESTERONE [Concomitant]
     Dosage: UNK
     Route: 064
  6. DOXYCYCLINE [Concomitant]
     Dosage: UNK
     Route: 064
  7. PRENATAL VITAMINS [Concomitant]
     Dosage: UNK
     Route: 064

REACTIONS (6)
  - Maternal exposure during pregnancy [Unknown]
  - Exomphalos [Unknown]
  - Ventricular septal defect [Unknown]
  - Atrial septal defect [Unknown]
  - Congenital anomaly [Unknown]
  - Neonatal respiratory distress syndrome [Unknown]
